FAERS Safety Report 9249639 (Version 1)
Quarter: 2013Q2

REPORT INFORMATION
  Report Type: Spontaneous
  Country: US (occurrence: US)
  Receive Date: 20130423
  Receipt Date: 20130423
  Transmission Date: 20140414
  Serious: No
  Sender: FDA-Public Use
  Company Number: US-BRISTOL-MYERS SQUIBB COMPANY-17333618

PATIENT
  Age: 67 Year
  Sex: Male

DRUGS (1)
  1. YERVOY [Suspect]

REACTIONS (3)
  - Platelet count decreased [Unknown]
  - Anaemia [Unknown]
  - White blood cell count decreased [Not Recovered/Not Resolved]
